FAERS Safety Report 5707502-6 (Version None)
Quarter: 2008Q2

REPORT INFORMATION
  Report Type: 
  Country: None (occurrence: None)
  Receive Date: 20080416
  Receipt Date: 20080407
  Transmission Date: 20081010
  Serious: Yes (Other)
  Sender: FDA-Public Use
  Company Number: US-PFIZER INC-2004035668

PATIENT
  Sex: Male
  Weight: 89.8 kg

DRUGS (6)
  1. LIPITOR [Suspect]
     Indication: BLOOD CHOLESTEROL INCREASED
     Dosage: DAILY DOSE:10MG
     Route: 048
  2. ALTACE [Concomitant]
  3. FOLIC ACID [Concomitant]
  4. ISOSORBIDE MONONITRATE [Concomitant]
  5. TOPROL-XL [Concomitant]
  6. ASPIRIN [Concomitant]

REACTIONS (13)
  - AMNESIA [None]
  - ARTHRALGIA [None]
  - BLOOD HOMOCYSTEINE ABNORMAL [None]
  - CONSTIPATION [None]
  - FATIGUE [None]
  - HIGH DENSITY LIPOPROTEIN DECREASED [None]
  - INFLUENZA [None]
  - LOW DENSITY LIPOPROTEIN DECREASED [None]
  - MALAISE [None]
  - MUSCLE SPASMS [None]
  - MYALGIA [None]
  - PAIN [None]
  - PROSTATIC SPECIFIC ANTIGEN INCREASED [None]
